FAERS Safety Report 8061722-7 (Version None)
Quarter: 2012Q1

REPORT INFORMATION
  Report Type: 
  Country: None (occurrence: None)
  Receive Date: 20120123
  Receipt Date: 20120112
  Transmission Date: 20120608
  Serious: Yes (Hospitalization)
  Sender: FDA-Public Use
  Company Number: US-BIOGENIDEC-2011BI043014

PATIENT
  Age: 41 Year
  Sex: Female

DRUGS (3)
  1. AVONEX [Suspect]
     Indication: MULTIPLE SCLEROSIS
     Route: 030
  2. AVONEX [Suspect]
     Route: 030
     Dates: start: 20070216, end: 20111202
  3. CHANTIX [Concomitant]
     Indication: EX-TOBACCO USER
     Dates: start: 20111201

REACTIONS (3)
  - NAUSEA [None]
  - FEELING ABNORMAL [None]
  - LUNG NEOPLASM MALIGNANT [None]
